FAERS Safety Report 20898343 (Version 3)
Quarter: 2022Q3

REPORT INFORMATION
  Report Type: Spontaneous
  Country: US (occurrence: US)
  Receive Date: 20220531
  Receipt Date: 20220803
  Transmission Date: 20221026
  Serious: Yes (Other)
  Sender: FDA-Public Use
  Company Number: US-JNJFOC-20220553526

PATIENT
  Sex: Female

DRUGS (7)
  1. ELMIRON [Suspect]
     Active Substance: PENTOSAN POLYSULFATE SODIUM
     Indication: Cystitis interstitial
     Route: 048
     Dates: start: 2002
  2. ELMIRON [Suspect]
     Active Substance: PENTOSAN POLYSULFATE SODIUM
     Route: 048
     Dates: start: 2003, end: 2022
  3. ACYCLOVIR [Concomitant]
     Active Substance: ACYCLOVIR
     Indication: Genital herpes
     Dates: start: 2005, end: 2022
  4. ACYCLOVIR [Concomitant]
     Active Substance: ACYCLOVIR
     Indication: Herpes zoster
  5. DESONIDE [Concomitant]
     Active Substance: DESONIDE
     Indication: Psoriasis
     Dates: start: 2010, end: 2022
  6. METRONIDAZOLE [Concomitant]
     Active Substance: METRONIDAZOLE
     Indication: Rosacea
     Dates: start: 2010
  7. GABAPENTIN [Concomitant]
     Active Substance: GABAPENTIN
     Indication: Herpes zoster
     Dates: start: 2021, end: 2022

REACTIONS (2)
  - Dry age-related macular degeneration [Not Recovered/Not Resolved]
  - Maculopathy [Unknown]

NARRATIVE: CASE EVENT DATE: 20180101
